FAERS Safety Report 10027974 (Version 1)
Quarter: 2014Q1

REPORT INFORMATION
  Report Type: Spontaneous
  Country: US (occurrence: None)
  Receive Date: 20140319
  Receipt Date: 20140319
  Transmission Date: 20141002
  Serious: Yes (Death)
  Sender: FDA-Public Use
  Company Number: UTC-045719

PATIENT
  Age: 72 Year
  Sex: Female
  Weight: 72.6 kg

DRUGS (3)
  1. REMODULIN (10 MILLIGRAM/MILLILITERS INJECTION FOR INFUSION) (TREPROSTINIL SODIUM) [Suspect]
     Indication: COR PULMONALE CHRONIC
     Dosage: 111.24 UG/KG (0.07725 UG/KG, 1 IN 1 MIN), SUBCUTANEOUS
     Dates: start: 20130322
  2. LETAIRIS (AMBRISENTAN) (TABLETS) [Concomitant]
  3. SILDENAFIL (SILDENAFIL) [Concomitant]

REACTIONS (1)
  - Death [None]
